FAERS Safety Report 7493238-0 (Version None)
Quarter: 2011Q2

REPORT INFORMATION
  Report Type: 
  Country: None (occurrence: None)
  Receive Date: 20110520
  Receipt Date: 20110112
  Transmission Date: 20111010
  Serious: Yes (Other)
  Sender: FDA-Public Use
  Company Number: US-BAYER-201037542NA

PATIENT
  Age: 21 Year
  Sex: Female
  Weight: 56.7 kg

DRUGS (7)
  1. METROGEL [Concomitant]
     Indication: VAGINITIS BACTERIAL
  2. NORDETTE-21 [Concomitant]
     Dosage: UNK
     Dates: end: 20050701
  3. EXCEDRIN (MIGRAINE) [Concomitant]
  4. ORTHO TRI-CYCLEN LO [Concomitant]
     Dosage: UNK
     Dates: start: 20060101, end: 20060301
  5. IMITREX [Concomitant]
     Dosage: 50 MG, PRN
     Route: 048
     Dates: start: 20061208
  6. YASMIN [Suspect]
     Indication: CONTRACEPTION
     Route: 048
     Dates: start: 20050101, end: 20061201
  7. NEXIUM [Concomitant]
     Dosage: 40 MG, QD
     Route: 048
     Dates: start: 20060926

REACTIONS (3)
  - GALLBLADDER INJURY [None]
  - CHOLECYSTITIS CHRONIC [None]
  - BILIARY DYSKINESIA [None]
